FAERS Safety Report 6017103-0 (Version None)
Quarter: 2008Q4

REPORT INFORMATION
  Report Type: 
  Country: None (occurrence: None)
  Receive Date: 20081219
  Receipt Date: 20081204
  Transmission Date: 20090506
  Serious: Yes (Hospitalization)
  Sender: FDA-Public Use
  Company Number: DSA_32906_2008

PATIENT
  Age: 41 Year
  Sex: Female

DRUGS (12)
  1. ATIVAN [Suspect]
     Indication: AGITATION
     Dosage: 8 MG ORAL, 6 MG, ORAL, 3 MG, ORAL, 8 MG, ORAL
     Route: 048
     Dates: start: 19940608, end: 19940706
  2. ATIVAN [Suspect]
     Indication: AGITATION
     Dosage: 8 MG ORAL, 6 MG, ORAL, 3 MG, ORAL, 8 MG, ORAL
     Route: 048
     Dates: start: 19940707, end: 19940709
  3. ATIVAN [Suspect]
     Indication: AGITATION
     Dosage: 8 MG ORAL, 6 MG, ORAL, 3 MG, ORAL, 8 MG, ORAL
     Route: 048
     Dates: start: 19940710, end: 19940714
  4. RISPERDAL [Suspect]
     Indication: SCHIZOPHRENIA
     Dosage: ORAL, MG, ORAL, 4 MG ORAL, 6 MG ORAL
     Route: 048
     Dates: start: 19940401, end: 19940101
  5. RISPERDAL [Suspect]
     Indication: SCHIZOPHRENIA
     Dosage: ORAL, MG, ORAL, 4 MG ORAL, 6 MG ORAL
     Route: 048
     Dates: start: 19940705, end: 19940706
  6. RISPERDAL [Suspect]
     Indication: SCHIZOPHRENIA
     Dosage: ORAL, MG, ORAL, 4 MG ORAL, 6 MG ORAL
     Route: 048
     Dates: start: 19940707, end: 19940708
  7. RISPERDAL [Suspect]
     Indication: SCHIZOPHRENIA
     Dosage: ORAL, MG, ORAL, 4 MG ORAL, 6 MG ORAL
     Route: 048
     Dates: start: 19940709, end: 19940710
  8. BENADRYL [Suspect]
     Indication: DRUG USE FOR UNKNOWN INDICATION
     Dosage: 50 MG
     Dates: start: 19940608, end: 19940616
  9. NAVANE [Concomitant]
  10. MOTRIN [Concomitant]
  11. LITHIUM [Concomitant]
  12. SEPTRA [Concomitant]

REACTIONS (12)
  - COMPUTERISED TOMOGRAM ABNORMAL [None]
  - DYSPNOEA [None]
  - EOSINOPHIL PERCENTAGE INCREASED [None]
  - GALLBLADDER DISORDER [None]
  - HYPERHIDROSIS [None]
  - HYPOTENSION [None]
  - LABILE BLOOD PRESSURE [None]
  - LIVER FUNCTION TEST ABNORMAL [None]
  - MENTAL STATUS CHANGES [None]
  - MYOSITIS [None]
  - PLATELET MORPHOLOGY ABNORMAL [None]
  - POLYCHROMASIA [None]
